FAERS Safety Report 13097816 (Version 1)
Quarter: 2017Q1

REPORT INFORMATION
  Report Type: Spontaneous
  Country: US (occurrence: US)
  Receive Date: 20170109
  Receipt Date: 20170109
  Transmission Date: 20170428
  Serious: Yes (Other)
  Sender: FDA-Public Use
  Company Number: None

PATIENT
  Age: 71 Year
  Sex: Female
  Weight: 53.1 kg

DRUGS (12)
  1. RALOXIFENE. [Concomitant]
     Active Substance: RALOXIFENE
  2. MUCINEX [Concomitant]
     Active Substance: GUAIFENESIN
  3. ALEVE [Concomitant]
     Active Substance: NAPROXEN SODIUM
  4. BENADRYL [Concomitant]
     Active Substance: DIPHENHYDRAMINE HYDROCHLORIDE
  5. VITAMIN B [Concomitant]
     Active Substance: VITAMIN B
  6. ATORVASTATIN 20 MG; GEN.FOR LIPI MYLAN [Suspect]
     Active Substance: ATORVASTATIN CALCIUM
     Indication: BLOOD CHOLESTEROL INCREASED
     Dosage: ?          QUANTITY:1 TABLET(S);?
     Route: 048
     Dates: start: 20160831
  7. ACYCLOVIR. [Concomitant]
     Active Substance: ACYCLOVIR
  8. ALPRAZOLAM. [Concomitant]
     Active Substance: ALPRAZOLAM
  9. BREWERS YEAST POWDER [Concomitant]
  10. ATORVASTATIN 20 MG; GEN.FOR LIPI MYLAN [Suspect]
     Active Substance: ATORVASTATIN CALCIUM
     Indication: BLOOD TRIGLYCERIDES INCREASED
     Dosage: ?          QUANTITY:1 TABLET(S);?
     Route: 048
     Dates: start: 20160831
  11. LOSARTAN. [Concomitant]
     Active Substance: LOSARTAN
  12. VITAMIN C [Concomitant]
     Active Substance: ASCORBIC ACID

REACTIONS (4)
  - Nightmare [None]
  - Disorientation [None]
  - Headache [None]
  - Panic reaction [None]

NARRATIVE: CASE EVENT DATE: 20170109
